FAERS Safety Report 5979565-4 (Version None)
Quarter: 2008Q4

REPORT INFORMATION
  Report Type: 
  Country: None (occurrence: None)
  Receive Date: 20081204
  Receipt Date: 20081125
  Transmission Date: 20090506
  Serious: Yes (Hospitalization, Other)
  Sender: FDA-Public Use
  Company Number: FR-ELI_LILLY_AND_COMPANY-FR200810005848

PATIENT
  Age: 18 Year
  Sex: Male

DRUGS (5)
  1. ZYPREXA [Suspect]
     Indication: BRIEF PSYCHOTIC DISORDER WITH MARKED STRESSORS
     Dosage: 20 MG, DAILY (1/D)
     Route: 048
     Dates: start: 20080927, end: 20081008
  2. ZYPREXA [Suspect]
     Dosage: 30 MG, DAILY (1/D)
     Route: 048
     Dates: start: 20081008, end: 20081012
  3. CLOPIXOL [Concomitant]
     Indication: BRIEF PSYCHOTIC DISORDER WITH MARKED STRESSORS
     Dosage: 10 MG, UNK
     Route: 030
     Dates: start: 20080924, end: 20080924
  4. TERCIAN [Concomitant]
     Indication: BRIEF PSYCHOTIC DISORDER WITH MARKED STRESSORS
     Dosage: 30 MG, DAILY (1/D)
     Route: 048
     Dates: start: 20081009, end: 20081012
  5. VALIUM [Concomitant]
     Indication: BRIEF PSYCHOTIC DISORDER WITH MARKED STRESSORS
     Dosage: 15 MG, DAILY (1/D)
     Route: 048

REACTIONS (3)
  - NEUROLEPTIC MALIGNANT SYNDROME [None]
  - OVERDOSE [None]
  - TRANSAMINASES INCREASED [None]
